FAERS Safety Report 17865467 (Version 1)
Quarter: 2020Q2

REPORT INFORMATION
  Report Type: Report from Study
  Country: CA (occurrence: CA)
  Receive Date: 20200605
  Receipt Date: 20200605
  Transmission Date: 20200714
  Serious: Yes (Other)
  Sender: FDA-Public Use
  Company Number: PHHY2017CA020455

PATIENT
  Age: 65 Year
  Sex: Female

DRUGS (5)
  1. VALSARTAN. [Suspect]
     Active Substance: VALSARTAN
     Indication: PRODUCT USED FOR UNKNOWN INDICATION
     Dosage: 80 MG, QD
     Route: 065
     Dates: start: 20161226
  2. SANDOSTATIN LAR DEPOT [Suspect]
     Active Substance: OCTREOTIDE ACETATE
     Indication: CARCINOID SYNDROME
     Dosage: 30 MG, QMO
     Route: 030
     Dates: start: 20120823, end: 20120904
  3. SANDOSTATIN LAR DEPOT [Suspect]
     Active Substance: OCTREOTIDE ACETATE
     Dosage: UNK
     Route: 030
     Dates: start: 20180321
  4. LUTETIUM (177LU) CHLORIDE [Suspect]
     Active Substance: LUTETIUM CHLORIDE LU-177
     Indication: PRODUCT USED FOR UNKNOWN INDICATION
     Dosage: UNK
     Route: 065
     Dates: start: 20170131
  5. SANDOSTATIN LAR DEPOT [Suspect]
     Active Substance: OCTREOTIDE ACETATE
     Dosage: 30 MG, QMO
     Route: 030
     Dates: start: 20141003

REACTIONS (21)
  - Feeling abnormal [Unknown]
  - Confusional state [Unknown]
  - Pyrexia [Unknown]
  - Central nervous system lesion [Unknown]
  - Oedema peripheral [Unknown]
  - Blood pressure decreased [Unknown]
  - Diarrhoea [Unknown]
  - Nausea [Unknown]
  - Blood pressure increased [Unknown]
  - Malaise [Unknown]
  - Influenza like illness [Unknown]
  - Pallor [Unknown]
  - Peripheral swelling [Unknown]
  - Asthenia [Unknown]
  - Decreased appetite [Unknown]
  - Anxiety [Unknown]
  - Blister [Unknown]
  - Dark circles under eyes [Unknown]
  - Gastroenteritis viral [Unknown]
  - Thyroid hormones increased [Unknown]
  - Vomiting [Unknown]

NARRATIVE: CASE EVENT DATE: 20170201
